FAERS Safety Report 21701843 (Version 1)
Quarter: 2022Q4

REPORT INFORMATION
  Report Type: Spontaneous
  Country: None (occurrence: US)
  Receive Date: 20221208
  Receipt Date: 20221208
  Transmission Date: 20230112
  Serious: Yes (Other)
  Sender: FDA-Public Use
  Company Number: US-Imprimis NJOF, LLC-2135693

PATIENT
  Age: 59 Year
  Sex: Female

DRUGS (1)
  1. BROMFENAC\MOXIFLOXACIN\PREDNISONE [Suspect]
     Active Substance: BROMFENAC\MOXIFLOXACIN\PREDNISONE
     Indication: Cataract
     Route: 047
     Dates: start: 20221204, end: 20221208

REACTIONS (2)
  - Swelling of eyelid [Unknown]
  - Eye swelling [Unknown]
